FAERS Safety Report 9509934 (Version 3)
Quarter: 2014Q2

REPORT INFORMATION
  Report Type: Spontaneous
  Country: US (occurrence: US)
  Receive Date: 20130909
  Receipt Date: 20140428
  Transmission Date: 20141212
  Serious: Yes (Other)
  Sender: FDA-Public Use
  Company Number: US-BRISTOL-MYERS SQUIBB COMPANY-18799361

PATIENT
  Age: 1 Day
  Sex: Female

DRUGS (3)
  1. ABILIFY [Suspect]
     Route: 064
  2. ZOLOFT [Suspect]
     Route: 064
  3. STRATTERA [Suspect]
     Dosage: 1DF:40
     Route: 064

REACTIONS (2)
  - Haemangioma [Unknown]
  - Skull malformation [Unknown]
